FAERS Safety Report 6409503-1 (Version None)
Quarter: 2009Q4

REPORT INFORMATION
  Report Type: 
  Country: None (occurrence: None)
  Receive Date: 20091019
  Receipt Date: 20091006
  Transmission Date: 20100525
  Serious: Yes (Other)
  Sender: FDA-Public Use
  Company Number: 8049923

PATIENT
  Age: 34 Year
  Sex: Male
  Weight: 90.9 kg

DRUGS (2)
  1. CIMZIA [Suspect]
     Indication: COLITIS ULCERATIVE
     Dosage: 400 MG SC
     Route: 058
     Dates: start: 20081112, end: 20090601
  2. CIMZIA [Suspect]
     Indication: CROHN'S DISEASE
     Dosage: 400 MG SC
     Route: 058
     Dates: start: 20081112, end: 20090601

REACTIONS (17)
  - ABDOMINAL NEOPLASM [None]
  - ADENOCARCINOMA [None]
  - APPENDIX DISORDER [None]
  - COLONIC POLYP [None]
  - INFLAMMATORY BOWEL DISEASE [None]
  - INTESTINAL DILATATION [None]
  - MEGACOLON [None]
  - MESENTERIC VEIN THROMBOSIS [None]
  - METASTATIC NEOPLASM [None]
  - NEPHROLITHIASIS [None]
  - NO THERAPEUTIC RESPONSE [None]
  - OBSTRUCTION [None]
  - PELVIC FLUID COLLECTION [None]
  - PERITONITIS [None]
  - PORTAL VEIN THROMBOSIS [None]
  - RECTAL CANCER [None]
  - SPLENIC VEIN THROMBOSIS [None]
